FAERS Safety Report 4305589-9 (Version None)
Quarter: 2004Q1

REPORT INFORMATION
  Report Type: 
  Country: None (occurrence: None)
  Receive Date: 20040226
  Receipt Date: 20031208
  Transmission Date: 20041129
  Serious: Yes (Hospitalization)
  Sender: FDA-Public Use
  Company Number: US-BRISTOL-MYERS SQUIBB COMPANY-12451696

PATIENT
  Age: 33 Year
  Sex: Male

DRUGS (3)
  1. ABILIFY [Suspect]
     Indication: SCHIZOPHRENIA
     Dosage: 10 MG/DAY IN APR-03.  RESTARTED 24-SEP-03 AT 5 MG/DAY.
     Route: 048
     Dates: start: 20030401
  2. OLANZAPINE [Concomitant]
  3. ZIPRASIDONE [Concomitant]

REACTIONS (1)
  - MANIA [None]
